FAERS Safety Report 4491404-X (Version None)
Quarter: 2004Q4

REPORT INFORMATION
  Report Type: 
  Country: None (occurrence: None)
  Receive Date: 20041101
  Receipt Date: 20041101
  Transmission Date: 20050328
  Serious: Yes (Hospitalization)
  Sender: FDA-Public Use
  Company Number: None

PATIENT
  Age: 42 Year
  Sex: Male
  Weight: 112.2 kg

DRUGS (3)
  1. CISPLATIN [Suspect]
     Indication: OESOPHAGEAL CARCINOMA
     Dosage: 100 MG/M2 IV DAY 1 AND 22
     Route: 042
     Dates: start: 20040928
  2. CISPLATIN [Suspect]
     Indication: OESOPHAGEAL CARCINOMA
     Dosage: 100 MG/M2 IV DAY 1 AND 22
     Route: 042
     Dates: start: 20041019
  3. RADIATION THERAPY [Suspect]
     Indication: OESOPHAGEAL CARCINOMA
     Dosage: DAILY
     Dates: start: 20040928, end: 20041020

REACTIONS (3)
  - DEHYDRATION [None]
  - DYSPHAGIA [None]
  - WEIGHT DECREASED [None]
